FAERS Safety Report 12983274 (Version 2)
Quarter: 2017Q3

REPORT INFORMATION
  Report Type: Spontaneous
  Country: NZ (occurrence: NZ)
  Receive Date: 20161129
  Receipt Date: 20170918
  Transmission Date: 20171127
  Serious: Yes (Hospitalization, Other)
  Sender: FDA-Public Use
  Company Number: NZ-ABBVIE-16P-118-1726045-00

PATIENT
  Sex: Female
  Weight: 50 kg

DRUGS (4)
  1. VIEKIRA PAK [Suspect]
     Active Substance: DASABUVIR\OMBITASVIR\PARITAPREVIR\RITONAVIR
     Route: 048
  2. RIBAVIRIN. [Suspect]
     Active Substance: RIBAVIRIN
     Indication: HEPATITIS C
     Dosage: 1000MG DIV DAILY
     Route: 048
     Dates: start: 20160815, end: 20160904
  3. MILK THISTLE [Concomitant]
     Active Substance: MILK THISTLE
     Indication: PRODUCT USED FOR UNKNOWN INDICATION
  4. VIEKIRA PAK [Suspect]
     Active Substance: DASABUVIR\OMBITASVIR\PARITAPREVIR\RITONAVIR
     Indication: CHRONIC HEPATITIS C
     Dosage: OMBITASVIR/PARITAPREVIR/RITONAVIR 12.5/75/50 MG 2 TABS AM , DASABUVIR 250MG AT HS
     Route: 048
     Dates: start: 20160815, end: 20160904

REACTIONS (15)
  - Gastrooesophageal reflux disease [Unknown]
  - Malaise [Unknown]
  - Emotional disorder [Recovered/Resolved]
  - Confusional state [Recovered/Resolved]
  - Suicidal ideation [Recovered/Resolved]
  - Hepatic cirrhosis [Not Recovered/Not Resolved]
  - Anxiety [Recovered/Resolved]
  - Confusional state [Unknown]
  - Pruritus [Not Recovered/Not Resolved]
  - Insomnia [Not Recovered/Not Resolved]
  - Hepatic steatosis [Not Recovered/Not Resolved]
  - Rash [Recovered/Resolved]
  - Nervousness [Unknown]
  - Fatigue [Unknown]
  - Dizziness [Recovered/Resolved]
